FAERS Safety Report 5854959-6 (Version None)
Quarter: 2008Q3

REPORT INFORMATION
  Report Type: 
  Country: None (occurrence: None)
  Receive Date: 20080822
  Receipt Date: 20080811
  Transmission Date: 20090109
  Serious: Yes (Other)
  Sender: FDA-Public Use
  Company Number: DE-PFIZER INC-2008069726

PATIENT
  Sex: Female

DRUGS (3)
  1. SU-011,248 [Suspect]
     Indication: OVARIAN CANCER
     Route: 048
  2. LEVOTHYROXINE SODIUM [Concomitant]
     Route: 048
  3. PANTOZOL [Concomitant]
     Route: 048

REACTIONS (1)
  - ANAL FISTULA [None]
